FAERS Safety Report 6703711-8 (Version None)
Quarter: 2010Q2

REPORT INFORMATION
  Report Type: 
  Country: None (occurrence: None)
  Receive Date: 20100428
  Receipt Date: 20100421
  Transmission Date: 20101027
  Serious: Yes (Hospitalization)
  Sender: FDA-Public Use
  Company Number: 2010SP022714

PATIENT
  Age: 55 Year
  Sex: Female

DRUGS (9)
  1. TEMODAL [Suspect]
     Indication: MIXED OLIGO-ASTROCYTOMA
     Dosage: 75 MG/M2;QD;PO, 340 MG;QD;PO
     Route: 048
     Dates: start: 20100116, end: 20100119
  2. TEMODAL [Suspect]
     Indication: MIXED OLIGO-ASTROCYTOMA
     Dosage: 75 MG/M2;QD;PO, 340 MG;QD;PO
     Route: 048
     Dates: start: 20091026
  3. DEPAKINE CHRONO [Concomitant]
  4. LEXOMIL [Concomitant]
  5. TETRAZEPAM [Concomitant]
  6. DAFALGAN [Concomitant]
  7. OMEPRAZOLE [Concomitant]
  8. IMOVANE [Concomitant]
  9. NOCTAMIDE [Concomitant]

REACTIONS (6)
  - DRUG TOXICITY [None]
  - DYSPNOEA [None]
  - GENERAL PHYSICAL HEALTH DETERIORATION [None]
  - HAEMOGLOBIN DECREASED [None]
  - INTERSTITIAL LUNG DISEASE [None]
  - OXYGEN SATURATION DECREASED [None]
